FAERS Safety Report 23981908 (Version 2)
Quarter: 2024Q2

REPORT INFORMATION
  Report Type: Spontaneous
  Country: JP (occurrence: JP)
  Receive Date: 20240617
  Receipt Date: 20240625
  Transmission Date: 20240716
  Serious: Yes (Other)
  Sender: FDA-Public Use
  Company Number: JP-NBI-BJ202404125

PATIENT
  Age: 71 Year
  Sex: Female

DRUGS (1)
  1. OFEV [Suspect]
     Active Substance: NINTEDANIB
     Indication: Idiopathic pulmonary fibrosis
     Route: 048
     Dates: start: 20240124

REACTIONS (15)
  - Idiopathic pulmonary fibrosis [Not Recovered/Not Resolved]
  - Faeces soft [Recovered/Resolved]
  - Cough [Recovered/Resolved]
  - Rhinorrhoea [Recovered/Resolved]
  - Malaise [Not Recovered/Not Resolved]
  - Faeces soft [Recovered/Resolved]
  - Nausea [Recovered/Resolved]
  - Dysgeusia [Recovering/Resolving]
  - Dysgeusia [Recovering/Resolving]
  - Paraesthesia oral [Not Recovered/Not Resolved]
  - Paraesthesia oral [Recovering/Resolving]
  - Impaired healing [Not Recovered/Not Resolved]
  - Wound [Not Recovered/Not Resolved]
  - Renal function test abnormal [Recovered/Resolved]
  - Face oedema [Not Recovered/Not Resolved]

NARRATIVE: CASE EVENT DATE: 20240304
